FAERS Safety Report 17351419 (Version 24)
Quarter: 2022Q2

REPORT INFORMATION
  Report Type: Spontaneous
  Country: GB (occurrence: GB)
  Receive Date: 20200130
  Receipt Date: 20220608
  Transmission Date: 20220721
  Serious: Yes (Life-Threatening, Hospitalization, Disabling, Congenital Anomaly, Other)
  Sender: FDA-Public Use
  Company Number: GB-BAUSCH-BL-2020-003132

PATIENT
  Age: 50 Year
  Sex: Female
  Weight: 60.6 kg

DRUGS (16)
  1. BALSALAZIDE [Suspect]
     Active Substance: BALSALAZIDE
     Indication: Colitis ulcerative
     Dosage: 3 CAPSULES ONCE DAILY, 2.25 G, 1X/DAY
     Route: 048
     Dates: start: 2008, end: 20200115
  2. BALSALAZIDE [Suspect]
     Active Substance: BALSALAZIDE
     Dosage: 75 MILLIGRAM, AM (75 MILLIGRAM (750 MG, 3 TABS IN
     Route: 065
     Dates: start: 2008, end: 20200115
  3. VENLAFAXINE [Suspect]
     Active Substance: VENLAFAXINE HYDROCHLORIDE
     Indication: Depression
     Dosage: 150 MG, QD (75 MG,2X/DAY), UNSPECIFIED VENLAFAXINE
     Route: 048
     Dates: start: 2015
  4. VENLAFAXINE [Suspect]
     Active Substance: VENLAFAXINE HYDROCHLORIDE
     Indication: Anxiety
     Dosage: 150 MILLIGRAM, QD, DISCONTINUED THEN REINTRODUCED AT REDUCED DOSE ON PSYCHIATRY ADVICE
     Route: 065
  5. VENLAFAXINE [Suspect]
     Active Substance: VENLAFAXINE HYDROCHLORIDE
     Dosage: 150 MILLIGRAM, QD, DISCONTINUED THEN REINTRODUCED AT REDUCED DOSE ON PSYCHIATRY ADVICE
     Route: 048
  6. EFFEXOR XR [Suspect]
     Active Substance: VENLAFAXINE HYDROCHLORIDE
     Indication: Depression
     Dosage: UNK, PROLONGED-RELEASE CAPSULE, EFFEXOR XL
     Route: 065
  7. EFFEXOR XR [Suspect]
     Active Substance: VENLAFAXINE HYDROCHLORIDE
     Indication: Anxiety
     Dosage: DISCONTINUED THEN REINTRODUCED AT REDUCED DOSE ON PSYCHIATRY ADVICE (150 MG,1 D), EFFEXOR XL
     Route: 048
  8. EFFEXOR XR [Suspect]
     Active Substance: VENLAFAXINE HYDROCHLORIDE
     Dosage: EFFEXOR XL
     Route: 065
  9. VENLAFAXINE [Suspect]
     Active Substance: VENLAFAXINE HYDROCHLORIDE
     Indication: Depression
     Dosage: DISCONTINUED THEN REINTRODUCED AT REDUCED DOSE ON PSYCHIATRY ADVICE (75 MG,1 D)
     Route: 048
  10. VENLAFAXINE [Suspect]
     Active Substance: VENLAFAXINE HYDROCHLORIDE
     Indication: Anxiety
     Dosage: DISCONTINUED THEN REINTRODUCED AT REDUCED DOSE ON PSYCHIATRY ADVICE (150 MG,1 D)
     Route: 048
     Dates: start: 2015
  11. BALSALAZIDE DISODIUM [Suspect]
     Active Substance: BALSALAZIDE DISODIUM
     Indication: Colitis ulcerative
     Dosage: 750 MG, 3 TABS IN THE MORNING
     Route: 065
  12. BALSALAZIDE DISODIUM [Suspect]
     Active Substance: BALSALAZIDE DISODIUM
     Indication: Anxiety
     Dosage: 750 MG, 3 TABS IN THE MORNING
     Route: 048
     Dates: start: 2008, end: 20200115
  13. EFFEXOR [Suspect]
     Active Substance: VENLAFAXINE HYDROCHLORIDE
     Indication: Anxiety
     Dosage: 75 MILLIGRAM, QD
     Route: 065
  14. TRIMETHOPRIM [Concomitant]
     Active Substance: TRIMETHOPRIM
     Indication: Product used for unknown indication
     Dosage: UNKNOWN (3 DAY COURSE)
     Dates: start: 20191204
  15. BALSALAZIDE DISODIUM [Concomitant]
     Active Substance: BALSALAZIDE DISODIUM
     Indication: Colitis ulcerative
     Dosage: 750 MG, 3 TABS IN THE MORNING
     Route: 048
     Dates: start: 2008, end: 20200115
  16. BALSALAZIDE [Concomitant]
     Active Substance: BALSALAZIDE
     Indication: Product used for unknown indication
     Dosage: 75 MILLIGRAM, AM (75 MILLIGRAM (750 MG, 3 TABS IN THE MORNING) )
     Route: 048
     Dates: start: 2008, end: 20080115

REACTIONS (10)
  - Congestive cardiomyopathy [Not Recovered/Not Resolved]
  - Left ventricular dysfunction [Not Recovered/Not Resolved]
  - Effusion [Not Recovered/Not Resolved]
  - Dyspnoea [Unknown]
  - Cardiomyopathy [Not Recovered/Not Resolved]
  - Chest discomfort [Unknown]
  - Cardiac failure [Not Recovered/Not Resolved]
  - Heart rate increased [Unknown]
  - Insomnia [Unknown]
  - Nausea [Unknown]

NARRATIVE: CASE EVENT DATE: 20200108
